FAERS Safety Report 10168655 (Version 1)
Quarter: 2014Q2

REPORT INFORMATION
  Report Type: Spontaneous
  Country: US (occurrence: None)
  Receive Date: 20140509
  Receipt Date: 20140509
  Transmission Date: 20141212
  Serious: Yes (Disabling, Other)
  Sender: FDA-Public Use
  Company Number: 201404101

PATIENT
  Age: 50 Year
  Sex: Male

DRUGS (3)
  1. TESTIM [Suspect]
     Indication: BLOOD TESTOSTERONE DECREASED
     Dates: start: 2011, end: 2012
  2. ANDROGEL [Suspect]
     Indication: BLOOD TESTOSTERONE DECREASED
     Dates: start: 2011, end: 2012
  3. AXIRON [Suspect]
     Indication: BLOOD TESTOSTERONE DECREASED
     Dates: start: 2011, end: 2012

REACTIONS (5)
  - Myocardial infarction [None]
  - Feeling abnormal [None]
  - Balance disorder [None]
  - Pain [None]
  - Unevaluable event [None]
